FAERS Safety Report 8556871-0 (Version None)
Quarter: 2012Q3

REPORT INFORMATION
  Report Type: 
  Country: None (occurrence: None)
  Receive Date: 20120801
  Receipt Date: 20120724
  Transmission Date: 20120928
  Serious: Yes (Hospitalization)
  Sender: FDA-Public Use
  Company Number: IE-BAYER-2012-052665

PATIENT
  Age: 48 Year
  Sex: Male

DRUGS (4)
  1. NEXAVAR [Suspect]
     Dosage: 400 MG, BID
     Dates: start: 20120719
  2. NEXAVAR [Suspect]
     Indication: THYROID CANCER
     Dosage: 400 MG, BID
     Route: 048
     Dates: start: 20120120, end: 20120705
  3. INNOHEP [Concomitant]
  4. FLUTICASONE PROPIONATE/SALMETEROL [Concomitant]
     Route: 055

REACTIONS (7)
  - DYSPNOEA [None]
  - CHEST DISCOMFORT [None]
  - MALAISE [None]
  - LOWER RESPIRATORY TRACT INFECTION [None]
  - PULMONARY EMBOLISM [None]
  - ABDOMINAL PAIN [None]
  - PAIN IN EXTREMITY [None]
